FAERS Safety Report 9107778 (Version 3)
Quarter: 2013Q2

REPORT INFORMATION
  Report Type: Spontaneous
  Country: US (occurrence: US)
  Receive Date: 20130221
  Receipt Date: 20130423
  Transmission Date: 20140414
  Serious: Yes (Hospitalization)
  Sender: FDA-Public Use
  Company Number: US-UCBSA-078159

PATIENT
  Age: 19 Month
  Sex: Female
  Weight: 11.6 kg

DRUGS (9)
  1. KEPPRA [Suspect]
     Indication: CONVULSION
     Dosage: DOSE STRENGH: 100 MG/ML, 250 MG BID
     Route: 042
     Dates: start: 20120821
  2. SABRIL [Suspect]
     Indication: TUBEROUS SCLEROSIS
     Dosage: DOSE INCREASED
  3. SABRIL [Suspect]
     Indication: INFANTILE SPASMS
     Dosage: DOSE INCREASED
  4. SABRIL [Suspect]
     Indication: TUBEROUS SCLEROSIS
  5. SABRIL [Suspect]
     Indication: INFANTILE SPASMS
  6. TAURINE [Concomitant]
     Dosage: FORM: LIQUID
  7. PROPOFOL [Concomitant]
     Indication: CONVULSION
     Dates: start: 20120821
  8. ATIVAN [Concomitant]
     Indication: CONVULSION
     Dates: start: 20120821
  9. DIASTAT ACUDAL [Concomitant]
     Indication: CONVULSION
     Dosage: 10 MG GEL
     Route: 054

REACTIONS (4)
  - Convulsion [Recovered/Resolved]
  - Mood swings [Unknown]
  - Aggression [Unknown]
  - Anger [Unknown]
